FAERS Safety Report 9380555 (Version 1)
Quarter: 2013Q3

REPORT INFORMATION
  Report Type: Spontaneous
  Country: FR (occurrence: FR)
  Receive Date: 20130702
  Receipt Date: 20130702
  Transmission Date: 20140515
  Serious: Yes (Life-Threatening)
  Sender: FDA-Public Use
  Company Number: FR-ROXANE LABORATORIES, INC.-2013-RO-01085RO

PATIENT
  Age: 24 Year
  Sex: Female

DRUGS (3)
  1. MORPHINE [Suspect]
  2. PECFENT [Suspect]
     Route: 045
  3. ALCOHOL [Suspect]

REACTIONS (2)
  - Suicide attempt [Recovered/Resolved]
  - Coma [Recovered/Resolved]
